FAERS Safety Report 11247493 (Version 3)
Quarter: 2015Q3

REPORT INFORMATION
  Report Type: Spontaneous
  Country: AT (occurrence: AT)
  Receive Date: 20150708
  Receipt Date: 20150824
  Transmission Date: 20151125
  Serious: Yes (Death, Other)
  Sender: FDA-Public Use
  Company Number: AT-BAYER-2015-373865

PATIENT
  Age: 26 Year
  Sex: Female

DRUGS (1)
  1. BETAFERON [Suspect]
     Active Substance: INTERFERON BETA-1B

REACTIONS (4)
  - Death [Fatal]
  - Hepatic necrosis [None]
  - Jaundice [None]
  - Hepatotoxicity [None]

NARRATIVE: CASE EVENT DATE: 1997
